FAERS Safety Report 8001271 (Version 5)
Quarter: 2022Q2

REPORT INFORMATION
  Report Type: Report from Study
  Country: US (occurrence: None)
  Receive Date: 20110621
  Receipt Date: 20220519
  Transmission Date: 20220721
  Serious: Yes (Life-Threatening, Hospitalization)
  Sender: FDA-Public Use
  Company Number: US-ROCHE-783127

PATIENT
  Age: 57 Year
  Sex: Female
  Weight: 90 kg

DRUGS (5)
  1. BEVACIZUMAB [Suspect]
     Active Substance: BEVACIZUMAB
     Indication: Ovarian epithelial cancer
     Dosage: CYCLE= 21 DAYS; OVER 30-90 MIN ON DAY 01, TOTAL DOSE: 1350 MG, LAST DATE ADMINISTERED: 8 MARCH 2011
     Route: 042
     Dates: start: 20090406
  2. PACLITAXEL [Suspect]
     Active Substance: PACLITAXEL
     Indication: Ovarian epithelial cancer
     Dosage: OVER 03 HOURS ON DAY 01; CYCLE=21 DAYS, TOTAL DOSE: 175 MG, LAST ADMINISTERED: 31 JULY 2011
     Route: 042
     Dates: start: 20090406
  3. DOCETAXEL [Suspect]
     Active Substance: DOCETAXEL
     Indication: Ovarian epithelial cancer
     Dosage: OVER 01 HOUR ON DAY 01; CYCLE=21 DAYS
     Route: 042
     Dates: start: 20090406
  4. CARBOPLATIN [Suspect]
     Active Substance: CARBOPLATIN
     Indication: Ovarian epithelial cancer
     Dosage: AUC 05 OVER 30 MIN ON DAY 01; CYCLE=21 DAYS, TOTAL DOSE: 467 MG, LAST DOSE ADMINISTERED: 31 JULY 201
     Route: 042
     Dates: start: 20090406
  5. ASPIRIN [Suspect]
     Active Substance: ASPIRIN
     Indication: Ovarian epithelial cancer
     Route: 065

REACTIONS (10)
  - Abdominal pain [Recovered/Resolved]
  - Dyspnoea [Recovered/Resolved]
  - Small intestinal obstruction [Recovering/Resolving]
  - Vision blurred [Recovering/Resolving]
  - Cerebral ischaemia [Recovered/Resolved]
  - Gastric haemorrhage [Recovered/Resolved]
  - Small intestinal obstruction [Recovered/Resolved]
  - Abdominal pain [Recovered/Resolved]
  - Dyspnoea [Recovered/Resolved]
  - Vision blurred [Unknown]

NARRATIVE: CASE EVENT DATE: 20090714
